FAERS Safety Report 14146190 (Version 2)
Quarter: 2017Q4

REPORT INFORMATION
  Report Type: Spontaneous
  Country: IT (occurrence: IT)
  Receive Date: 20171031
  Receipt Date: 20171208
  Transmission Date: 20180321
  Serious: Yes (Hospitalization)
  Sender: FDA-Public Use
  Company Number: IT-JNJFOC-20171034827

PATIENT
  Age: 38 Year
  Sex: Female

DRUGS (2)
  1. FORTRADOL [Suspect]
     Active Substance: TRAMADOL HYDROCHLORIDE
     Indication: PRODUCT USED FOR UNKNOWN INDICATION
     Route: 048
     Dates: end: 20171021
  2. NAVELBINE [Interacting]
     Active Substance: VINORELBINE TARTRATE
     Indication: BREAST CANCER
     Route: 042

REACTIONS (2)
  - Ileus paralytic [Recovering/Resolving]
  - Drug interaction [Recovering/Resolving]

NARRATIVE: CASE EVENT DATE: 20171021
